FAERS Safety Report 16323168 (Version 1)
Quarter: 2019Q2

REPORT INFORMATION
  Report Type: Spontaneous
  Country: CN (occurrence: CN)
  Receive Date: 20190517
  Receipt Date: 20190517
  Transmission Date: 20190711
  Serious: Yes (Hospitalization)
  Sender: FDA-Public Use
  Company Number: CN-BAXTER-2019BAX009703

PATIENT
  Age: 31 Year
  Sex: Female
  Weight: 55 kg

DRUGS (12)
  1. 0.9% SODIUM CHLORIDE INJECTION [Suspect]
     Active Substance: SODIUM CHLORIDE
     Dosage: DOCETAXEL 90MG+0.9%NS350ML
     Route: 041
     Dates: start: 20190122, end: 20190122
  2. 0.9% SODIUM CHLORIDE INJECTION [Suspect]
     Active Substance: SODIUM CHLORIDE
     Indication: MEDICATION DILUTION
     Dosage: CYCLOPHOSPHAMIDE 0.62G+0.9%NS40ML
     Route: 042
     Dates: start: 20190122, end: 20190122
  3. ENDOXAN [Suspect]
     Active Substance: CYCLOPHOSPHAMIDE
     Indication: BREAST CANCER
     Dosage: CYCLOPHOSPHAMIDE 0.62G+0.9%NS40ML
     Route: 042
     Dates: start: 20190122, end: 20190122
  4. ENDOXAN [Suspect]
     Active Substance: CYCLOPHOSPHAMIDE
     Dosage: DOSE RE-INTRODUCED, CYCLOPHOSPHAMIDE+0.9% SODIUM CHLORIDE
     Route: 042
  5. 0.9% SODIUM CHLORIDE INJECTION [Suspect]
     Active Substance: SODIUM CHLORIDE
     Dosage: DOSE RE-INTRODUCED, EPIRUBICIN + 0.9% SODIUM CHLORIDE
     Route: 041
  6. EPIRUBICIN HYDROCHLORIDE. [Suspect]
     Active Substance: EPIRUBICIN HYDROCHLORIDE
     Indication: BREAST CANCER
     Dosage: EPIRUBICIN 90MG+0.9%NS200ML
     Route: 041
     Dates: start: 20190122, end: 20190122
  7. EPIRUBICIN HYDROCHLORIDE. [Suspect]
     Active Substance: EPIRUBICIN HYDROCHLORIDE
     Dosage: DOSE RE-INTRODUCED, EPIRUBICIN HYDROCHLORIDE + 0.9% SODIUM CHLORIDE
     Route: 041
  8. AISU [Suspect]
     Active Substance: DOCETAXEL
     Indication: BREAST CANCER
     Dosage: DOCETAXEL 90MG+0.9%NS350ML
     Route: 041
     Dates: start: 20190122, end: 20190122
  9. 0.9% SODIUM CHLORIDE INJECTION [Suspect]
     Active Substance: SODIUM CHLORIDE
     Dosage: EPIRUBICIN 90MG+0.9%NS200ML
     Route: 041
     Dates: start: 20190122, end: 20190122
  10. 0.9% SODIUM CHLORIDE INJECTION [Suspect]
     Active Substance: SODIUM CHLORIDE
     Dosage: DOSE RE-INTRODUCED, CYCLOPHOSPHAMIDE+ 0.9% SODIUM CHLORIDE
     Route: 042
  11. 0.9% SODIUM CHLORIDE INJECTION [Suspect]
     Active Substance: SODIUM CHLORIDE
     Dosage: DOSE RE-INTRODUCED, DOCETAXEL + 0.9% SODIUM CHLORIDE
     Route: 041
  12. AISU [Suspect]
     Active Substance: DOCETAXEL
     Dosage: DOSE RE-INTRODUCED, DOCETAXEL + 0.9% SODIUM CHLORIDE
     Route: 041

REACTIONS (1)
  - Bone marrow failure [Unknown]

NARRATIVE: CASE EVENT DATE: 20190128
